FAERS Safety Report 5382709-9 (Version None)
Quarter: 2007Q3

REPORT INFORMATION
  Report Type: 
  Country: None (occurrence: None)
  Receive Date: 20070710
  Receipt Date: 20070629
  Transmission Date: 20080115
  Serious: Yes (Other)
  Sender: FDA-Public Use
  Company Number: US-ROCHE-504894

PATIENT
  Age: 48 Year
  Sex: Female

DRUGS (15)
  1. VALIUM [Suspect]
     Indication: DRUG USE FOR UNKNOWN INDICATION
     Route: 065
     Dates: start: 19950101
  2. KLONOPIN [Suspect]
     Indication: DRUG USE FOR UNKNOWN INDICATION
     Route: 065
  3. DIAZEPAM [Suspect]
     Indication: DRUG USE FOR UNKNOWN INDICATION
     Route: 065
  4. LEXAPRO [Suspect]
     Indication: DRUG USE FOR UNKNOWN INDICATION
     Route: 065
  5. CYMBALTA [Suspect]
     Indication: DRUG USE FOR UNKNOWN INDICATION
     Route: 065
  6. GEODON [Suspect]
     Indication: DRUG USE FOR UNKNOWN INDICATION
     Route: 065
  7. ATIVAN [Suspect]
     Indication: DRUG USE FOR UNKNOWN INDICATION
     Route: 065
  8. XANAX [Suspect]
     Indication: DRUG USE FOR UNKNOWN INDICATION
     Route: 065
  9. ZOLOFT [Suspect]
     Indication: DRUG USE FOR UNKNOWN INDICATION
     Route: 065
  10. ZONISAMIDE [Suspect]
     Indication: MIGRAINE
     Route: 065
  11. ZONISAMIDE [Suspect]
     Dosage: DOSE ADJUSTED
     Route: 065
  12. LIPITOR [Concomitant]
  13. PROZAC [Concomitant]
  14. UNSPECIFIED DRUG [Concomitant]
     Dosage: REPORTED AS ^PAIN MEDICATION^
  15. LOPRESSOR [Concomitant]
     Indication: BLOOD PRESSURE

REACTIONS (6)
  - ADVERSE DRUG REACTION [None]
  - BRAIN NEOPLASM [None]
  - DIZZINESS [None]
  - DRUG INEFFECTIVE [None]
  - DRUG INTOLERANCE [None]
  - FALL [None]
